FAERS Safety Report 17959135 (Version 3)
Quarter: 2021Q3

REPORT INFORMATION
  Report Type: Spontaneous
  Country: NL (occurrence: NL)
  Receive Date: 20200629
  Receipt Date: 20210713
  Transmission Date: 20211014
  Serious: Yes (Other)
  Sender: FDA-Public Use
  Company Number: NL-PFIZER INC-2020246546

PATIENT
  Age: 30 Month
  Sex: Female
  Weight: 10 kg

DRUGS (3)
  1. MISOPROSTOL. [Suspect]
     Active Substance: MISOPROSTOL
     Indication: ABORTION INDUCED
     Dosage: 400 UG (2X200 UG)
     Route: 064
  2. MISOPROSTOL. [Suspect]
     Active Substance: MISOPROSTOL
     Dosage: 600 UG (3X200 UG)
     Route: 064
  3. METHOTREXATE. [Suspect]
     Active Substance: METHOTREXATE
     Indication: ABORTION INDUCED
     Dosage: 1 MG/KG
     Route: 064

REACTIONS (5)
  - Maternal exposure during pregnancy [Unknown]
  - Microcephaly [Unknown]
  - Oral fibroma [Unknown]
  - Dysmorphism [Unknown]
  - Limb hypoplasia congenital [Unknown]
